FAERS Safety Report 8817635 (Version 1)
Quarter: 2012Q4

REPORT INFORMATION
  Report Type: 
  Country: BR (occurrence: BR)
  Receive Date: 20121001
  Receipt Date: 20121001
  Transmission Date: 20130627
  Serious: Yes (Other)
  Sender: FDA-Public Use
  Company Number: BR-ASTRAZENECA-2012SE73703

PATIENT
  Age: 11 Year
  Sex: Female
  Weight: 42 kg

DRUGS (4)
  1. LOSEC [Suspect]
     Indication: GASTRITIS PROPHYLAXIS
     Route: 048
     Dates: start: 20120816
  2. OXCARBAZEPINE [Interacting]
     Indication: EPILEPSY
     Dosage: DAILY
     Route: 048
  3. PREDNISOLONE [Concomitant]
     Indication: SYSTEMIC LUPUS ERYTHEMATOSUS
     Route: 048
  4. NITRAZEPAM [Concomitant]
     Indication: EPILEPSY
     Route: 048

REACTIONS (2)
  - Drug interaction [Not Recovered/Not Resolved]
  - Nystagmus [Not Recovered/Not Resolved]
